FAERS Safety Report 4514953-4 (Version None)
Quarter: 2004Q4

REPORT INFORMATION
  Report Type: 
  Country: None (occurrence: None)
  Receive Date: 20041129
  Receipt Date: 20041129
  Transmission Date: 20050328
  Serious: Yes (Life-Threatening)
  Sender: FDA-Public Use
  Company Number: None

PATIENT
  Sex: Female
  Weight: 23.6 kg

DRUGS (3)
  1. VINCRISTINE [Suspect]
     Indication: RHABDOMYOSARCOMA
     Dosage: 1.3 MG
     Dates: start: 20040805, end: 20041027
  2. DACTINOMYCIN [Suspect]
     Indication: RHABDOMYOSARCOMA
     Dosage: 1025 MCG
     Dates: start: 20040805, end: 20041027
  3. CYTOXAN [Suspect]
     Indication: RHABDOMYOSARCOMA
     Dosage: 1914 MG
     Dates: start: 20040805, end: 20041027

REACTIONS (2)
  - ABDOMINAL DISTENSION [None]
  - VENOOCCLUSIVE DISEASE [None]
